FAERS Safety Report 5827156-8 (Version None)
Quarter: 2008Q3

REPORT INFORMATION
  Report Type: 
  Country: None (occurrence: None)
  Receive Date: 20080729
  Receipt Date: 20080729
  Transmission Date: 20090109
  Serious: Yes (Other)
  Sender: FDA-Public Use
  Company Number: None

PATIENT
  Age: 28 Year
  Sex: Female
  Weight: 52.1637 kg

DRUGS (1)
  1. YASMIN [Suspect]
     Indication: CONTRACEPTION
     Dosage: 1 PILL A DAY PO
     Route: 048
     Dates: start: 20080615, end: 20080728

REACTIONS (5)
  - HUNGER [None]
  - MIGRAINE [None]
  - MOOD ALTERED [None]
  - POLLAKIURIA [None]
  - VISION BLURRED [None]
